FAERS Safety Report 7479675-9 (Version None)
Quarter: 2011Q2

REPORT INFORMATION
  Report Type: 
  Country: None (occurrence: None)
  Receive Date: 20110513
  Receipt Date: 20110505
  Transmission Date: 20111010
  Serious: Yes (Hospitalization, Other)
  Sender: FDA-Public Use
  Company Number: DE-ELI_LILLY_AND_COMPANY-DE201105001562

PATIENT
  Sex: Male
  Weight: 85 kg

DRUGS (7)
  1. ASPIRIN [Concomitant]
     Dosage: UNK UNK, UNKNOWN
  2. PANTOPRAZOLE [Concomitant]
     Dosage: UNK, UNKNOWN
     Route: 065
  3. IRBESARTAN [Concomitant]
     Dosage: UNK, UNKNOWN
     Route: 065
  4. JANUMET [Concomitant]
     Dosage: UNK, UNKNOWN
     Route: 065
  5. EFFIENT [Suspect]
     Dosage: 10 MG, UNKNOWN
     Route: 065
     Dates: start: 20110428, end: 20110502
  6. EFFIENT [Suspect]
     Indication: STENT PLACEMENT
     Dosage: 10 MG, UNKNOWN
     Route: 065
     Dates: start: 20110301, end: 20110425
  7. ATORVASTATIN CALCIUM [Concomitant]
     Dosage: UNK, UNKNOWN
     Route: 065

REACTIONS (3)
  - POST PROCEDURAL HAEMORRHAGE [None]
  - COLONOSCOPY [None]
  - HAEMOGLOBIN DECREASED [None]
